FAERS Safety Report 19964203 (Version 1)
Quarter: 2021Q4

REPORT INFORMATION
  Report Type: Spontaneous
  Country: US (occurrence: US)
  Receive Date: 20211018
  Receipt Date: 20211018
  Transmission Date: 20220304
  Serious: No
  Sender: FDA-Public Use
  Company Number: 2021A752488

PATIENT
  Sex: Female
  Weight: 65.8 kg

DRUGS (1)
  1. BUDESONIDE\FORMOTEROL [Suspect]
     Active Substance: BUDESONIDE\FORMOTEROL
     Indication: Dyspnoea
     Dosage: 160/4.5 MCG INHALE ONE PUFF BY MOUTH EVERY FOUR HOURS AS NEEDED
     Route: 055
     Dates: start: 20210831

REACTIONS (4)
  - Wrong technique in device usage process [Unknown]
  - Dyspnoea [Unknown]
  - Wheezing [Unknown]
  - Arrhythmia [Unknown]
